FAERS Safety Report 7479660-7 (Version None)
Quarter: 2011Q2

REPORT INFORMATION
  Report Type: 
  Country: None (occurrence: None)
  Receive Date: 20110513
  Receipt Date: 20110509
  Transmission Date: 20111010
  Serious: Yes (Death)
  Sender: FDA-Public Use
  Company Number: US-CELGENEUS-163-21880-11032764

PATIENT
  Sex: Female

DRUGS (16)
  1. WHOLE BLOOD [Concomitant]
     Route: 051
     Dates: start: 20110304, end: 20110304
  2. FERROUS SULFATE TAB [Concomitant]
     Dosage: 325 MILLIGRAM
     Route: 048
  3. MEGACE [Concomitant]
     Dosage: 4TSP
     Route: 048
  4. AMITRIPTYLINE HCL [Concomitant]
     Dosage: 25 MILLIGRAM
     Route: 065
  5. VELCADE [Concomitant]
     Route: 065
     Dates: start: 20100819, end: 20101208
  6. DEXAMETHASONE [Concomitant]
     Dosage: 20 MILLIGRAM
     Route: 065
  7. CELEXA [Concomitant]
     Dosage: 40 MILLIGRAM
     Route: 048
  8. OXYGEN [Concomitant]
     Dosage: 2 LITERS
     Route: 065
  9. VITAMIN B COMPLEX CAP [Concomitant]
     Dosage: 1 CAPSULE
     Route: 048
  10. ZOFRAN [Concomitant]
     Dosage: 8 MILLIGRAM
     Route: 065
  11. ZOMETA [Concomitant]
     Dosage: 20 MILLIGRAM
     Route: 065
  12. REVLIMID [Suspect]
     Indication: MULTIPLE MYELOMA
     Dosage: 15 MILLIGRAM
     Route: 048
     Dates: start: 20100304, end: 20110310
  13. OSCAL [Concomitant]
     Dosage: 500/200MG UNIT
     Route: 065
  14. VITAMIN D [Concomitant]
     Dosage: 1000 UNIT
     Route: 048
  15. COUMADIN [Concomitant]
     Dosage: 5 MILLIGRAM
     Route: 065
  16. ACCUNEB [Concomitant]
     Dosage: .63 MILLIGRAM/MILLILITERS

REACTIONS (1)
  - RESPIRATORY FAILURE [None]
